FAERS Safety Report 20934714 (Version 1)
Quarter: 2022Q2

REPORT INFORMATION
  Report Type: Spontaneous
  Country: US (occurrence: US)
  Receive Date: 20220608
  Receipt Date: 20220608
  Transmission Date: 20220721
  Serious: Yes (Other)
  Sender: FDA-Public Use
  Company Number: US-SA-SAC20220603001696

PATIENT
  Age: 61 Year
  Sex: Female

DRUGS (3)
  1. ZANTAC [Suspect]
     Active Substance: RANITIDINE HYDROCHLORIDE
     Indication: Gastrooesophageal reflux disease
     Dosage: UNK, QD
     Route: 065
     Dates: start: 198904, end: 198909
  2. ZANTAC [Suspect]
     Active Substance: RANITIDINE HYDROCHLORIDE
     Indication: Hyperchlorhydria
  3. MITOMYCIN [Suspect]
     Active Substance: MITOMYCIN
     Route: 065

REACTIONS (4)
  - Bladder cancer [Unknown]
  - Bladder perforation [Unknown]
  - Pain [Unknown]
  - Nerve injury [Unknown]

NARRATIVE: CASE EVENT DATE: 20121201
